FAERS Safety Report 9298848 (Version 2)
Quarter: 2013Q2

REPORT INFORMATION
  Report Type: Spontaneous
  Country: US (occurrence: US)
  Receive Date: 20130520
  Receipt Date: 20130627
  Transmission Date: 20140414
  Serious: No
  Sender: FDA-Public Use
  Company Number: US-PFIZER INC-2013153411

PATIENT
  Age: 70 Year
  Sex: Male
  Weight: 98.41 kg

DRUGS (7)
  1. DEPO-MEDROL [Suspect]
     Indication: ASTHMA
     Dosage: 80 MG, MONTHLY
  2. DEPO-MEDROL [Suspect]
     Dosage: 80 MG, MONTHLY
     Dates: start: 201302, end: 20130318
  3. DEPO-MEDROL [Suspect]
     Dosage: 80 MG, MONTHLY
     Dates: start: 20130514
  4. CARDIZEM [Concomitant]
     Indication: HYPERTENSION
     Dosage: 240MG DAILY
  5. METOPROLOL [Concomitant]
     Indication: HYPERTENSION
     Dosage: 15MG DAILY
  6. ZYRTEC [Concomitant]
     Indication: RHINITIS ALLERGIC
     Dosage: 10MG DAILY
  7. INDOMETHACIN [Concomitant]
     Indication: GOUT
     Dosage: 50 MG, AS NEEDED

REACTIONS (1)
  - Drug ineffective [Unknown]
